FAERS Safety Report 4344741-3 (Version None)
Quarter: 2004Q2

REPORT INFORMATION
  Report Type: 
  Country: None (occurrence: None)
  Receive Date: 20040423
  Receipt Date: 20040406
  Transmission Date: 20050107
  Serious: Yes (Death, Hospitalization)
  Sender: FDA-Public Use
  Company Number: 200413906GDDC

PATIENT
  Age: 56 Year
  Sex: Male
  Weight: 68 kg

DRUGS (6)
  1. DOCETAXEL [Suspect]
     Indication: MESOTHELIOMA MALIGNANT
     Route: 042
     Dates: start: 20031117, end: 20031117
  2. PREMETREXED NOS [Suspect]
     Indication: MESOTHELIOMA MALIGNANT
     Route: 042
     Dates: start: 20031110, end: 20031117
  3. ACETAMINOPHEN [Concomitant]
     Indication: PAIN
     Dates: start: 20031010
  4. DF118 [Concomitant]
     Indication: PAIN
     Dates: start: 20031010
  5. VITAMIN B-12 [Concomitant]
     Indication: PROPHYLAXIS
     Dates: start: 20031104
  6. FOLIC ACID [Concomitant]
     Indication: PROPHYLAXIS
     Dates: start: 20031105

REACTIONS (9)
  - ATRIAL FIBRILLATION [None]
  - BRONCHOPNEUMONIA [None]
  - DISEASE PROGRESSION [None]
  - GENERAL PHYSICAL HEALTH DETERIORATION [None]
  - HYPERKALAEMIA [None]
  - PERICARDIAL EFFUSION [None]
  - PERICARDITIS [None]
  - PLEURAL EFFUSION [None]
  - PULMONARY EMBOLISM [None]
